FAERS Safety Report 13927462 (Version 2)
Quarter: 2018Q2

REPORT INFORMATION
  Report Type: Spontaneous
  Country: US (occurrence: US)
  Receive Date: 20170901
  Receipt Date: 20180606
  Transmission Date: 20180711
  Serious: No
  Sender: FDA-Public Use
  Company Number: US-BRISTOL-MYERS SQUIBB COMPANY-BMS-2017-078277

PATIENT
  Sex: Female
  Weight: 53.52 kg

DRUGS (1)
  1. COUMADIN [Suspect]
     Active Substance: WARFARIN SODIUM
     Indication: ATRIAL FIBRILLATION
     Dosage: 2.5 MG, QD
     Route: 048

REACTIONS (6)
  - Exercise tolerance decreased [Unknown]
  - Insomnia [Unknown]
  - Nightmare [Unknown]
  - Alopecia [Unknown]
  - Dyspnoea [Unknown]
  - Prothrombin time prolonged [Unknown]
